FAERS Safety Report 23334586 (Version 3)
Quarter: 2024Q1

REPORT INFORMATION
  Report Type: Spontaneous
  Country: US (occurrence: US)
  Receive Date: 20231224
  Receipt Date: 20240217
  Transmission Date: 20240409
  Serious: No
  Sender: FDA-Public Use
  Company Number: US-LUPIN PHARMACEUTICALS INC.-2023-11428

PATIENT

DRUGS (1)
  1. BUDESONIDE [Suspect]
     Active Substance: BUDESONIDE
     Indication: Chronic obstructive pulmonary disease
     Dosage: UNK, 1 VIAL ONCE DAILY BY NEBULIZATION
     Route: 065

REACTIONS (4)
  - Product use issue [Unknown]
  - Liquid product physical issue [Unknown]
  - Product quality issue [Unknown]
  - No adverse event [Unknown]
